FAERS Safety Report 12075082 (Version 3)
Quarter: 2016Q1

REPORT INFORMATION
  Report Type: Spontaneous
  Country: JP (occurrence: JP)
  Receive Date: 20160212
  Receipt Date: 20160219
  Transmission Date: 20160526
  Serious: Yes (Death, Other)
  Sender: FDA-Public Use
  Company Number: PHHY2016JP016845

PATIENT
  Age: 86 Year
  Sex: Male
  Weight: 44 kg

DRUGS (4)
  1. VINCRISTINE [Suspect]
     Active Substance: VINCRISTINE
     Indication: SARCOMA
     Dosage: 1 MG/M2, UNK
     Route: 065
  2. PREDNISOLONE. [Suspect]
     Active Substance: PREDNISOLONE
     Indication: SARCOMA
     Dosage: 30 MG/M2, UNK
     Route: 065
  3. CYCLOPHOSPHAMIDE. [Suspect]
     Active Substance: CYCLOPHOSPHAMIDE
     Indication: SARCOMA
     Dosage: 500 MG/M2, UNK
     Route: 065
  4. PIRARUBICIN [Suspect]
     Active Substance: PIRARUBICIN
     Indication: SARCOMA
     Dosage: 30 MG/M2, UNK
     Route: 065

REACTIONS (5)
  - Myelodysplastic syndrome [Fatal]
  - Febrile neutropenia [Unknown]
  - Bone marrow failure [Unknown]
  - Acute myeloid leukaemia [Fatal]
  - Therapeutic response decreased [Unknown]
